FAERS Safety Report 4680155-4 (Version None)
Quarter: 2005Q2

REPORT INFORMATION
  Report Type: 
  Country: None (occurrence: None)
  Receive Date: 20050602
  Receipt Date: 20040108
  Transmission Date: 20051028
  Serious: Yes (Other)
  Sender: FDA-Public Use
  Company Number: PHBS2004BE00761

PATIENT
  Age: 72 Year
  Sex: Male

DRUGS (11)
  1. VINCRISTINE + ADRIAMYCIN + DEXAMETHASONE [Concomitant]
     Dosage: 3 CYCLES
     Dates: start: 20020805, end: 20021104
  2. MEDROL [Concomitant]
     Dosage: 64 MG, ONCE/SINGLE
     Dates: start: 20040123, end: 20040123
  3. ZOMETA [Suspect]
     Indication: METASTASES TO BONE
     Dosage: 4 MG, UNK
     Route: 065
     Dates: start: 20020730, end: 20030612
  4. ZOMETA [Suspect]
     Dosage: 2 MG, UNK
     Route: 065
     Dates: start: 20030710, end: 20031010
  5. SINTROM [Concomitant]
  6. THALIDOMIDE [Concomitant]
     Dates: start: 20030101
  7. DEXAMETHASONE [Concomitant]
     Dates: start: 20030101
  8. THYROXINE [Concomitant]
  9. ARANESP [Concomitant]
  10. CORVATARD [Concomitant]
  11. AREDIA [Suspect]
     Dosage: 90 MG, UNK
     Route: 065
     Dates: start: 20031205

REACTIONS (13)
  - BLOOD CREATININE INCREASED [None]
  - BLOOD URIC ACID DECREASED [None]
  - BONE INFECTION [None]
  - CONDITION AGGRAVATED [None]
  - MULTIPLE MYELOMA [None]
  - NEPHRITIS INTERSTITIAL [None]
  - OSTEONECROSIS [None]
  - PRIMARY SEQUESTRUM [None]
  - RECURRENT CANCER [None]
  - RENAL FAILURE [None]
  - RENAL INTERSTITIAL FIBROSIS [None]
  - RENAL TUBULAR ATROPHY [None]
  - TOOTH EXTRACTION [None]
